FAERS Safety Report 4349398-3 (Version None)
Quarter: 2004Q2

REPORT INFORMATION
  Report Type: 
  Country: None (occurrence: None)
  Receive Date: 20040428
  Receipt Date: 20040416
  Transmission Date: 20050107
  Serious: Yes (Hospitalization)
  Sender: FDA-Public Use
  Company Number: TW-GLAXOSMITHKLINE-B0330120A

PATIENT
  Age: 68 Year
  Sex: Male
  Weight: 42 kg

DRUGS (1)
  1. SALMETEROL [Suspect]
     Indication: CHRONIC OBSTRUCTIVE AIRWAYS DISEASE
     Dosage: 50MCG TWICE PER DAY
     Route: 055
     Dates: start: 20011114

REACTIONS (5)
  - ARTHRALGIA [None]
  - HAEMOGLOBIN DECREASED [None]
  - OSTEOLYSIS [None]
  - OSTEONECROSIS [None]
  - ROAD TRAFFIC ACCIDENT [None]
